FAERS Safety Report 19454956 (Version 1)
Quarter: 2021Q2

REPORT INFORMATION
  Report Type: Spontaneous
  Country: CA (occurrence: CA)
  Receive Date: 20210623
  Receipt Date: 20210623
  Transmission Date: 20210717
  Serious: Yes (Death, Other)
  Sender: FDA-Public Use
  Company Number: CA-009507513-2106CAN005731

PATIENT
  Age: 54 Year
  Sex: Male
  Weight: 87 kg

DRUGS (3)
  1. KEYTRUDA [Suspect]
     Active Substance: PEMBROLIZUMAB
     Indication: NON-SMALL CELL LUNG CANCER METASTATIC
     Dosage: 190.0 MILLIGRAM, 1 EVERY 3 WEEKS; I.V. INFUSION. 4 ML SINGLE USE VIAL.
     Route: 041
  2. ELIQUIS [Concomitant]
     Active Substance: APIXABAN
  3. KEYTRUDA [Suspect]
     Active Substance: PEMBROLIZUMAB
     Dosage: 376.0 MILLIGRAM, 1 EVERY 6 WEEKS; I.V. INFUSION. 4 ML SINGLE USE VIAL.
     Route: 041

REACTIONS (2)
  - Immune thrombocytopenia [Fatal]
  - Cerebral infarction [Fatal]
